FAERS Safety Report 8609741-3 (Version None)
Quarter: 2012Q3

REPORT INFORMATION
  Report Type: 
  Country: None (occurrence: None)
  Receive Date: 20120821
  Receipt Date: 20120808
  Transmission Date: 20120928
  Serious: Yes (Life-Threatening, Hospitalization)
  Sender: FDA-Public Use
  Company Number: CH-FRI-1000037808

PATIENT
  Sex: Female

DRUGS (12)
  1. SEROQUEL [Concomitant]
     Dosage: 62.5 MG
     Route: 048
  2. LORAZEPAM [Concomitant]
     Dosage: 1 MG, AS NEEDED
     Dates: end: 20120617
  3. VI-DE 3 [Concomitant]
     Dosage: 12.8571 GTT
  4. ESCITALOPRAM [Suspect]
     Dosage: 20 MG
     Route: 048
  5. MOVIPREP [Concomitant]
     Route: 048
  6. MARCUMAR [Suspect]
     Indication: EMBOLISM VENOUS
     Dosage: 3 MG
     Route: 048
  7. BUDENOFALK [Concomitant]
     Dosage: 6 MG
     Route: 048
  8. CALCIUM SANDOZ FF [Concomitant]
     Dosage: 500 MG
     Route: 048
  9. TORSEMIDE [Concomitant]
     Dosage: 20 MG
     Route: 048
  10. PANTOPRAZOLE [Concomitant]
     Dosage: 40 MG
     Route: 048
  11. BISOPROLOL FUMARATE [Concomitant]
     Dosage: 1.25 MG
     Route: 048
     Dates: start: 20120623
  12. OXYCONTIN [Concomitant]
     Dosage: 30 MG
     Route: 048

REACTIONS (1)
  - SUBDURAL HAEMATOMA [None]
